FAERS Safety Report 15249062 (Version 1)
Quarter: 2018Q3

REPORT INFORMATION
  Report Type: Other
  Country: DE (occurrence: DE)
  Receive Date: 20180807
  Receipt Date: 20180807
  Transmission Date: 20181010
  Serious: Yes (Other)
  Sender: FDA-Public Use
  Company Number: DE-LUPIN PHARMACEUTICALS INC.-2018-05584

PATIENT
  Age: 35 Year
  Sex: Female
  Weight: 54 kg

DRUGS (9)
  1. METOPROLOL SUCCINATE. [Suspect]
     Active Substance: METOPROLOL SUCCINATE
     Indication: HYPERTENSION
     Dosage: INITIA 2 X 95MG/D, THEN DOSAGE DECREASE TO 2 X 47.5MG/D ()
     Route: 048
     Dates: start: 20171209, end: 20180504
  2. PANTOPRAZOL                        /01263201/ [Suspect]
     Active Substance: PANTOPRAZOLE
     Indication: GASTRITIS PROPHYLAXIS
     Dosage: 40 MG, QD
     Route: 048
  3. MIFEGYNE [Concomitant]
     Active Substance: MIFEPRISTONE
     Indication: ABORTION INDUCED
     Dosage: UNK UNK, QD
     Route: 048
     Dates: start: 20180502, end: 20180503
  4. DORZOLAMIDE [Concomitant]
     Active Substance: DORZOLAMIDE
     Indication: GLAUCOMA
     Dosage: UNK
     Route: 047
  5. CERGEM [Concomitant]
     Active Substance: GEMEPROST
     Indication: ABORTION INDUCED
     Dosage: UNK UNK, QD
     Route: 067
     Dates: start: 20180502, end: 20180503
  6. CANDESARTAN. [Suspect]
     Active Substance: CANDESARTAN
     Indication: HYPERTENSION
     Dosage: 32 MG, QD
     Route: 048
  7. TORASEMID [Concomitant]
     Active Substance: TORSEMIDE
     Indication: HYPERTENSION
     Dosage: UNK
     Route: 048
  8. LAMOTRIGINE. [Suspect]
     Active Substance: LAMOTRIGINE
     Indication: EPILEPSY
     Dosage: 100 [MG/D ]/ 50 TO 100 MG/D
     Route: 048
     Dates: start: 20171209, end: 20180504
  9. NEPRESOL                           /00007602/ [Suspect]
     Active Substance: HYDRALAZINE HYDROCHLORIDE
     Indication: HYPERTENSION
     Dosage: 50 MG, QD
     Route: 048
     Dates: start: 20171209

REACTIONS (2)
  - Exposure during pregnancy [Unknown]
  - Oligohydramnios [Recovered/Resolved]
